FAERS Safety Report 7735122-0 (Version None)
Quarter: 2011Q3

REPORT INFORMATION
  Report Type: 
  Country: None (occurrence: None)
  Receive Date: 20110907
  Receipt Date: 20110824
  Transmission Date: 20111222
  Serious: No
  Sender: FDA-Public Use
  Company Number: JP-ASTRAZENECA-2011SE49495

PATIENT
  Age: 28484 Day
  Sex: Female

DRUGS (7)
  1. MEROPENEM [Suspect]
     Indication: INFECTION
     Route: 042
     Dates: start: 20110803, end: 20110806
  2. CRESTOR [Concomitant]
  3. MEROPENEM [Suspect]
     Indication: CELLULITIS
     Route: 042
     Dates: start: 20110803, end: 20110806
  4. CONIEL [Concomitant]
  5. AMARYL [Concomitant]
  6. NORVASC [Concomitant]
  7. CIPROFLOXACIN HCL [Concomitant]

REACTIONS (2)
  - HEPATIC FUNCTION ABNORMAL [None]
  - INFLAMMATION [None]
